FAERS Safety Report 8539737-1 (Version None)
Quarter: 2012Q3

REPORT INFORMATION
  Report Type: 
  Country: None (occurrence: None)
  Receive Date: 20120726
  Receipt Date: 20110725
  Transmission Date: 20120928
  Serious: No
  Sender: FDA-Public Use
  Company Number: US-ASTRAZENECA-2006UW16624

PATIENT
  Age: 59 Year
  Sex: Female
  Weight: 88.5 kg

DRUGS (12)
  1. WELLBUTRIN [Concomitant]
  2. WATER PILL [Concomitant]
  3. LYRICA [Concomitant]
  4. SEROQUEL [Suspect]
     Indication: BIPOLAR DISORDER
     Route: 048
     Dates: start: 20051201
  5. SEROQUEL [Suspect]
     Route: 048
     Dates: start: 20060101
  6. DEPAKOATE [Concomitant]
  7. BUTRAN PATCH [Concomitant]
  8. ARACEPT [Concomitant]
  9. KLONOPIN [Concomitant]
  10. CELEXA [Concomitant]
  11. ESTRADIOL [Concomitant]
  12. FENTYL PATCH [Concomitant]

REACTIONS (6)
  - DEMENTIA ALZHEIMER'S TYPE [None]
  - WEIGHT INCREASED [None]
  - PNEUMONIA [None]
  - COGNITIVE DISORDER [None]
  - FIBROMYALGIA [None]
  - CHRONIC FATIGUE SYNDROME [None]
